FAERS Safety Report 18130814 (Version 2)
Quarter: 2020Q4

REPORT INFORMATION
  Report Type: Spontaneous
  Country: FI (occurrence: FI)
  Receive Date: 20200810
  Receipt Date: 20201105
  Transmission Date: 20210113
  Serious: Yes (Hospitalization)
  Sender: FDA-Public Use
  Company Number: FI-BRISTOL-MYERS SQUIBB COMPANY-BMS-2020-062459

PATIENT
  Sex: Male

DRUGS (2)
  1. KLEXANE [Concomitant]
     Active Substance: ENOXAPARIN
     Indication: PRODUCT USED FOR UNKNOWN INDICATION
     Dosage: UNK
     Route: 065
  2. OPDIVO [Suspect]
     Active Substance: NIVOLUMAB
     Indication: LUNG NEOPLASM MALIGNANT
     Dosage: STATED 500 G, ASSUMED 500 MG, EVERY 4 WEEKS
     Route: 042
     Dates: start: 202001

REACTIONS (8)
  - Headache [Unknown]
  - Tremor [Unknown]
  - Inflammation [Unknown]
  - Muscular weakness [Unknown]
  - Musculoskeletal stiffness [Unknown]
  - Myalgia [Unknown]
  - Tinnitus [Unknown]
  - Intentional product use issue [Unknown]
